FAERS Safety Report 4719744-7 (Version None)
Quarter: 2005Q3

REPORT INFORMATION
  Report Type: 
  Country: None (occurrence: None)
  Receive Date: 20050721
  Receipt Date: 20040712
  Transmission Date: 20060218
  Serious: Yes (Other)
  Sender: FDA-Public Use
  Company Number: US-GLAXOSMITHKLINE-A0517863A

PATIENT

DRUGS (2)
  1. AVANDIA [Suspect]
     Route: 048
  2. AVAPRO [Concomitant]

REACTIONS (1)
  - PLEURAL EFFUSION [None]
